FAERS Safety Report 4540632-3 (Version None)
Quarter: 2004Q4

REPORT INFORMATION
  Report Type: 
  Country: None (occurrence: None)
  Receive Date: 20041222
  Receipt Date: 20041207
  Transmission Date: 20050328
  Serious: Yes (Other)
  Sender: FDA-Public Use
  Company Number: 2004JP002170

PATIENT
  Age: 35 Year
  Sex: Female
  Weight: 50 kg

DRUGS (1)
  1. PROTOPIC [Suspect]
     Indication: DERMATITIS EXFOLIATIVE
     Dosage: 0.10 %, TOPICAL
     Route: 061

REACTIONS (2)
  - DERMATITIS EXFOLIATIVE [None]
  - LYMPHOMA [None]
